FAERS Safety Report 17203225 (Version 1)
Quarter: 2019Q4

REPORT INFORMATION
  Report Type: Spontaneous
  Country: CA (occurrence: CA)
  Receive Date: 20191226
  Receipt Date: 20191226
  Transmission Date: 20200122
  Serious: Yes (Hospitalization)
  Sender: FDA-Public Use
  Company Number: CA-TEVA-2019-CA-1156410

PATIENT
  Age: 61 Year
  Sex: Male

DRUGS (2)
  1. ATORVASTATIN [Concomitant]
     Active Substance: ATORVASTATIN
  2. PREGABALIN. [Suspect]
     Active Substance: PREGABALIN
     Indication: FIBROMYALGIA
     Dosage: 50 MILLIGRAM DAILY;
     Route: 048

REACTIONS (4)
  - Dehydration [Recovered/Resolved]
  - Blood pressure increased [Recovered/Resolved]
  - Off label use [Recovered/Resolved]
  - Product use issue [Recovered/Resolved]
